FAERS Safety Report 16079305 (Version 2)
Quarter: 2019Q1

REPORT INFORMATION
  Report Type: Spontaneous
  Country: PL (occurrence: PL)
  Receive Date: 20190315
  Receipt Date: 20190322
  Transmission Date: 20190418
  Serious: Yes (Death, Other)
  Sender: FDA-Public Use
  Company Number: PHHY2018PL092803

PATIENT
  Age: 61 Year
  Sex: Male

DRUGS (9)
  1. SIGNIFOR LAR [Suspect]
     Active Substance: PASIREOTIDE
     Indication: PITUITARY TUMOUR BENIGN
     Dosage: 0.6 MG, BID
     Route: 058
  2. TEMOZOLOMIDE. [Suspect]
     Active Substance: TEMOZOLOMIDE
     Indication: PITUITARY TUMOUR BENIGN
     Dosage: 320 MG, QD (6 CYCLES OF TMZ, 5 CONSECUTIVE DAYS (28-DAY CYCLE)  )
     Route: 065
     Dates: start: 20150424, end: 20150917
  3. TEMOZOLOMIDE. [Suspect]
     Active Substance: TEMOZOLOMIDE
     Indication: ACTH-PRODUCING PITUITARY TUMOUR
  4. TRIMETHOPRIM SULFAMETHOXAZOLE [Concomitant]
     Active Substance: SULFAMETHOXAZOLE\TRIMETHOPRIM
     Indication: PRODUCT USED FOR UNKNOWN INDICATION
     Dosage: UNK
     Route: 065
  5. TEMOZOLOMIDE. [Suspect]
     Active Substance: TEMOZOLOMIDE
     Indication: MALIGNANT GLIOMA
     Dosage: 1 DF, QD (150-200 MG/M2) FOR FIVE CONSECUTIVE DAYS (28-DAY CYCLE)
     Route: 065
     Dates: start: 201504, end: 201512
  6. TEMOZOLOMIDE. [Suspect]
     Active Substance: TEMOZOLOMIDE
     Indication: CUSHING^S SYNDROME
     Dosage: 320 OT, QD  (FOR FIVE CONSECUTIVE DAYS (28-DAY CYCLE)
     Route: 065
     Dates: start: 20150917, end: 20151217
  7. KETOCONAZOLE. [Suspect]
     Active Substance: KETOCONAZOLE
     Dosage: 300 MG, QD
     Route: 065
     Dates: start: 2011
  8. KETOCONAZOLE. [Suspect]
     Active Substance: KETOCONAZOLE
     Indication: HYPERCORTICOIDISM
     Dosage: 600 MG, QD
     Route: 065
     Dates: start: 2011
  9. ONDANSETRON [Concomitant]
     Active Substance: ONDANSETRON
     Indication: PRODUCT USED FOR UNKNOWN INDICATION
     Dosage: UNK
     Route: 065

REACTIONS (13)
  - Deafness [Unknown]
  - Off label use [Fatal]
  - IIIrd nerve paresis [Unknown]
  - Nausea [Unknown]
  - Condition aggravated [Unknown]
  - Brain stem syndrome [Fatal]
  - Disease progression [Fatal]
  - Hepatotoxicity [Unknown]
  - Headache [Unknown]
  - Hepatic function abnormal [Unknown]
  - Diabetes mellitus [Unknown]
  - Drug effect incomplete [Unknown]
  - Pituitary-dependent Cushing^s syndrome [Fatal]

NARRATIVE: CASE EVENT DATE: 201511
